FAERS Safety Report 9778061 (Version 1)
Quarter: 2013Q4

REPORT INFORMATION
  Report Type: Spontaneous
  Country: US (occurrence: US)
  Receive Date: 20131223
  Receipt Date: 20131223
  Transmission Date: 20140711
  Serious: Yes (Other)
  Sender: FDA-Public Use
  Company Number: US-BEH-2013039585

PATIENT
  Age: 51 Year
  Sex: Male
  Weight: 72 kg

DRUGS (8)
  1. ZEMAIRA [Suspect]
     Indication: BRONCHITIS CHRONIC
     Route: 042
     Dates: start: 20131202, end: 20131202
  2. DIPHENHYDRAMINE [Concomitant]
  3. HEPARIN [Concomitant]
  4. NORMAL SALINE [Concomitant]
  5. EPI-PEN [Concomitant]
  6. SYMBICORT [Concomitant]
  7. SPIRIVA [Concomitant]
  8. SODIUM CHLORIDE [Concomitant]

REACTIONS (3)
  - Dyspnoea [Unknown]
  - Pain [Unknown]
  - Headache [Unknown]
